FAERS Safety Report 23644335 (Version 1)
Quarter: 2024Q1

REPORT INFORMATION
  Report Type: Spontaneous
  Country: US (occurrence: None)
  Receive Date: 20240317
  Receipt Date: 20240317
  Transmission Date: 20240409
  Serious: Yes (Disabling)
  Sender: FDA-Public Use
  Company Number: None

PATIENT
  Age: 72 Year
  Sex: Female
  Weight: 95.4 kg

DRUGS (14)
  1. JARDIANCE [Suspect]
     Active Substance: EMPAGLIFLOZIN
     Indication: Stress cardiomyopathy
     Dosage: FREQUENCY : DAILY;?
     Route: 048
  2. COREG [Suspect]
     Active Substance: CARVEDILOL
     Indication: Stress cardiomyopathy
     Dosage: FREQUENCY : TWICE A DAY;?
     Route: 048
  3. ENTRESTO [Suspect]
     Active Substance: SACUBITRIL\VALSARTAN
  4. XARELTO [Concomitant]
     Active Substance: RIVAROXABAN
  5. PANTOPRAZOLE [Concomitant]
     Active Substance: PANTOPRAZOLE
  6. PRAMIPEXOLE [Concomitant]
     Active Substance: PRAMIPEXOLE\PRAMIPEXOLE DIHYDROCHLORIDE
  7. DIHYDRO-POTASSIUM CHLOR ER [Concomitant]
  8. LATANOPROST EYE DROP [Concomitant]
  9. PREDNISOLONE ACETATE EYE DROP [Concomitant]
  10. TIMOLOL MALEATE EYE DROP [Concomitant]
  11. COMPLETE MULTIVITAMIN WOMEN^S 50+ [Concomitant]
  12. AZO URINARY TRACT HEALTH [Concomitant]
     Active Substance: PHENAZOPYRIDINE HYDROCHLORIDE
  13. CETIRIZINE [Concomitant]
     Active Substance: CETIRIZINE HYDROCHLORIDE
  14. VITAMIN D2 [Concomitant]
     Active Substance: ERGOCALCIFEROL

REACTIONS (15)
  - Swelling face [None]
  - Peripheral swelling [None]
  - Rash [None]
  - Arthralgia [None]
  - Gait disturbance [None]
  - Contusion [None]
  - Thyroid mass [None]
  - Nasal pruritus [None]
  - Herpes zoster [None]
  - Skin haemorrhage [None]
  - Cough [None]
  - Dysstasia [None]
  - Joint stiffness [None]
  - Limb injury [None]
  - Dermatitis contact [None]

NARRATIVE: CASE EVENT DATE: 20230515
